FAERS Safety Report 9444070 (Version 1)
Quarter: 2013Q3

REPORT INFORMATION
  Report Type: Spontaneous
  Country: US (occurrence: None)
  Receive Date: 20130806
  Receipt Date: 20130806
  Transmission Date: 20140515
  Serious: Yes (Hospitalization)
  Sender: FDA-Public Use
  Company Number: None

PATIENT
  Age: 80 Year
  Sex: Female
  Weight: 58.97 kg

DRUGS (10)
  1. AZITHROMYCIN [Suspect]
     Indication: SINUSITIS
     Dosage: 250 MG 2 TABS FIRST DAY 2 TABS 2-4TH DAY 2 TABS FIRST DAY - NEVER FINISHED BY MOUTH
     Route: 048
     Dates: start: 20130624, end: 20130624
  2. AMLODIPINE [Concomitant]
  3. BESYLATE [Concomitant]
  4. FOSAMAX [Concomitant]
  5. LOVASTATIN [Concomitant]
  6. CENTRUM SILVER VITAMIN [Concomitant]
  7. CALCIUM SOFT CHEWS [Concomitant]
  8. VIT D [Concomitant]
  9. PHILLIPS COLON HEALTH [Concomitant]
  10. METAMUCIL [Concomitant]

REACTIONS (5)
  - Rash generalised [None]
  - Pain [None]
  - Pruritus [None]
  - Stevens-Johnson syndrome [None]
  - Product quality issue [None]
